FAERS Safety Report 7830398-3 (Version None)
Quarter: 2011Q4

REPORT INFORMATION
  Report Type: 
  Country: None (occurrence: None)
  Receive Date: 20111021
  Receipt Date: 20111012
  Transmission Date: 20120403
  Serious: Yes (Hospitalization)
  Sender: FDA-Public Use
  Company Number: FR-PFIZER INC-2011252318

PATIENT
  Age: 87 Year
  Sex: Male

DRUGS (14)
  1. PREVISCAN [Interacting]
     Indication: PRODUCT USED FOR UNKNOWN INDICATION
     Dosage: 0.75 DF, 1X/DAY
     Route: 048
     Dates: end: 20110914
  2. OMEPRAZOLE [Concomitant]
  3. PLAVIX [Concomitant]
  4. VALSARTAN [Concomitant]
     Dosage: UNK
     Dates: end: 20110910
  5. CORDARONE [Suspect]
     Indication: PRODUCT USED FOR UNKNOWN INDICATION
     Dosage: 1 DF, 1X/DAY
     Route: 048
  6. LEVOTHYROXINE SODIUM [Interacting]
     Dosage: 3 GTT, 1X/DAY
     Route: 048
     Dates: start: 20110913, end: 20110914
  7. LEVOTHYROXINE SODIUM [Interacting]
     Indication: PRODUCT USED FOR UNKNOWN INDICATION
     Dosage: 1 GTT, 1X/DAY
     Route: 048
     Dates: start: 20110908, end: 20110910
  8. BISOPROLOL FUMARATE [Concomitant]
  9. GLUCOPHAGE [Concomitant]
  10. LEVOTHYROXINE SODIUM [Interacting]
     Dosage: 2 GTT, 1X/DAY
     Route: 048
     Dates: start: 20110911, end: 20110912
  11. SIMVASTATIN [Concomitant]
  12. COZAAR [Concomitant]
  13. ARICEPT [Concomitant]
  14. LASIX [Concomitant]

REACTIONS (3)
  - ACCIDENTAL OVERDOSE [None]
  - INTERNATIONAL NORMALISED RATIO INCREASED [None]
  - DRUG INTERACTION [None]
